FAERS Safety Report 5919037-6 (Version None)
Quarter: 2008Q4

REPORT INFORMATION
  Report Type: 
  Country: None (occurrence: None)
  Receive Date: 20081014
  Receipt Date: 20081014
  Transmission Date: 20090506
  Serious: No
  Sender: FDA-Public Use
  Company Number: None

PATIENT
  Age: 41 Year
  Sex: Female
  Weight: 49.8957 kg

DRUGS (1)
  1. AMBIEN [Suspect]
     Indication: INSOMNIA
     Dosage: 15MG 1 PO
     Route: 048
     Dates: start: 20060701, end: 20081015

REACTIONS (5)
  - ABASIA [None]
  - AMNESIA [None]
  - DYSARTHRIA [None]
  - FATIGUE [None]
  - VISION BLURRED [None]
